FAERS Safety Report 8276041 (Version 2)
Quarter: 2012Q4

REPORT INFORMATION
  Report Type: 
  Country: US (occurrence: US)
  Receive Date: 20111206
  Receipt Date: 20120921
  Transmission Date: 20130627
  Serious: Yes (Other)
  Sender: FDA-Public Use
  Company Number: US-US-EMD SERONO, INC.-7097194

PATIENT
  Age: 27 None
  Sex: Female

DRUGS (1)
  1. REBIF [Suspect]
     Indication: PRODUCT USED FOR UNKNOWN INDICATION
     Route: 058
     Dates: start: 20100507, end: 20111109

REACTIONS (3)
  - Abortion spontaneous [Unknown]
  - Diarrhoea [Unknown]
  - Maternal exposure timing unspecified [Unknown]
